FAERS Safety Report 9527516 (Version 1)
Quarter: 2013Q3

REPORT INFORMATION
  Report Type: Spontaneous
  Country: US (occurrence: None)
  Receive Date: 20130913
  Receipt Date: 20130913
  Transmission Date: 20140515
  Serious: Yes (Disabling, Other)
  Sender: FDA-Public Use
  Company Number: None

PATIENT
  Age: 66 Year
  Sex: Female
  Weight: 60.78 kg

DRUGS (8)
  1. ATORVASTATIN (GENERIC LIPITOR) [Suspect]
     Indication: BLOOD CHOLESTEROL INCREASED
     Route: 048
     Dates: start: 20130314, end: 20130728
  2. GENERIC LIPITOR ATORVASTATIN CAL 20 MG RANBAXY PHARMACEUTICALS [Suspect]
  3. ENALAPRIL [Concomitant]
  4. LEVOTHYROXIN [Concomitant]
  5. ESTRA [Concomitant]
  6. NORETH [Concomitant]
  7. HORMONE [Concomitant]
  8. MULTI VITAMIN [Concomitant]

REACTIONS (2)
  - Pain [None]
  - High density lipoprotein decreased [None]
